FAERS Safety Report 5888668-4 (Version None)
Quarter: 2008Q3

REPORT INFORMATION
  Report Type: 
  Country: None (occurrence: None)
  Receive Date: 20080916
  Receipt Date: 20080909
  Transmission Date: 20090109
  Serious: Yes (Death)
  Sender: FDA-Public Use
  Company Number: MSTR-NO-0809S-0064

PATIENT
  Age: 71 Year
  Sex: Male
  Weight: 53 kg

DRUGS (2)
  1. METASTRON [Suspect]
     Indication: BONE PAIN
     Dosage: SINGLE DOSE, I.V.
     Route: 042
     Dates: start: 20080327, end: 20080327
  2. METASTRON [Suspect]
     Indication: METASTASES TO BONE
     Dosage: SINGLE DOSE, I.V.
     Route: 042
     Dates: start: 20080327, end: 20080327

REACTIONS (7)
  - ANAEMIA [None]
  - CONDITION AGGRAVATED [None]
  - HEPATIC FUNCTION ABNORMAL [None]
  - METASTASES TO LIVER [None]
  - METASTASES TO PERITONEUM [None]
  - PLATELET COUNT DECREASED [None]
  - WHITE BLOOD CELL COUNT DECREASED [None]
